FAERS Safety Report 8971274 (Version 1)
Quarter: 2012Q4

REPORT INFORMATION
  Report Type: 
  Country: TW (occurrence: TW)
  Receive Date: 20121218
  Receipt Date: 20121218
  Transmission Date: 20130627
  Serious: Yes (Life-Threatening, Hospitalization)
  Sender: FDA-Public Use
  Company Number: TW-PFIZER INC-2012313105

PATIENT
  Age: 64 Year
  Sex: Male

DRUGS (3)
  1. OXALIPLATIN [Suspect]
     Indication: COLON CANCER
     Dosage: 85 mg/m2, cyclic
  2. FOLINIC ACID [Concomitant]
     Indication: COLON CANCER
     Dosage: 75 mg/m2, cyclic
  3. FLUOROURACIL [Concomitant]
     Indication: COLON CANCER
     Dosage: 1500 mg/m2, cyclic

REACTIONS (1)
  - Hyperammonaemic encephalopathy [Not Recovered/Not Resolved]
